FAERS Safety Report 9277484 (Version 2)
Quarter: 2013Q3

REPORT INFORMATION
  Report Type: Spontaneous
  Country: SE (occurrence: SE)
  Receive Date: 20130508
  Receipt Date: 20130703
  Transmission Date: 20140515
  Serious: Yes (Other)
  Sender: FDA-Public Use
  Company Number: SE-NOVOPROD-376842

PATIENT
  Age: 6 Year
  Sex: Male

DRUGS (1)
  1. NOVORAPID [Suspect]
     Indication: PRODUCT USED FOR UNKNOWN INDICATION
     Dosage: UNK
     Route: 065
     Dates: start: 20100427, end: 20130301

REACTIONS (1)
  - Lipodystrophy acquired [Not Recovered/Not Resolved]
